FAERS Safety Report 15712802 (Version 3)
Quarter: 2019Q4

REPORT INFORMATION
  Report Type: Report from Study
  Country: JP (occurrence: JP)
  Receive Date: 20181212
  Receipt Date: 20191112
  Transmission Date: 20200122
  Serious: Yes (Hospitalization)
  Sender: FDA-Public Use
  Company Number: JP-EISAI MEDICAL RESEARCH-EC-2018-049020

PATIENT
  Age: 67 Year
  Sex: Female
  Weight: 71 kg

DRUGS (18)
  1. LENVIMA [Suspect]
     Active Substance: LENVATINIB
     Indication: HEPATOCELLULAR CARCINOMA
     Route: 048
     Dates: start: 20180821, end: 20181003
  2. LENVIMA [Suspect]
     Active Substance: LENVATINIB
     Dosage: 4 MG AND 8 MG ALTERNATING DAYS
     Route: 048
     Dates: start: 20181129
  3. THYRADIN S [Concomitant]
     Active Substance: LEVOTHYROXINE SODIUM
  4. LENVIMA [Suspect]
     Active Substance: LENVATINIB
     Route: 048
     Dates: start: 20181108, end: 20181128
  5. LOPERAMIDE [Concomitant]
     Active Substance: LOPERAMIDE
  6. VITAMEDIN [Concomitant]
     Active Substance: CYANOCOBALAMIN\PYRIDOXINE HYDROCHLORIDE\THIAMINE
  7. ANTEBATE [Concomitant]
     Active Substance: BETAMETHASONE DIPROPIONATE
  8. HEPARINOID [Concomitant]
     Active Substance: CHONDROITIN SULFATE (BOVINE)
  9. AMINOLEBAN EN [Concomitant]
     Active Substance: UNSPECIFIED INGREDIENT
  10. TELMISARTAN. [Concomitant]
     Active Substance: TELMISARTAN
  11. ALBUMIN [Concomitant]
     Active Substance: ALBUMIN HUMAN
  12. SOLDEM 1 [Concomitant]
     Active Substance: DEXTROSE\SODIUM CHLORIDE\SODIUM LACTATE
  13. AMLODIPINE [Concomitant]
     Active Substance: AMLODIPINE BESYLATE
  14. C-PARA [Concomitant]
     Active Substance: VITAMINS
  15. ADSORBIN [Concomitant]
     Active Substance: ALUMINUM SILICATE
  16. LENVIMA [Suspect]
     Active Substance: LENVATINIB
     Route: 048
     Dates: start: 20181004, end: 20181017
  17. LAC-B [Concomitant]
     Active Substance: BIFIDOBACTERIUM SPP.
  18. FUROSEMIDE. [Concomitant]
     Active Substance: FUROSEMIDE

REACTIONS (2)
  - Blood creatinine increased [Recovered/Resolved]
  - Diarrhoea [Recovered/Resolved]

NARRATIVE: CASE EVENT DATE: 20180829
